FAERS Safety Report 19936940 (Version 3)
Quarter: 2021Q4

REPORT INFORMATION
  Report Type: Report from Study
  Country: US (occurrence: US)
  Receive Date: 20211009
  Receipt Date: 20211117
  Transmission Date: 20220303
  Serious: Yes (Other)
  Sender: FDA-Public Use
  Company Number: NVSC2021US229203

PATIENT
  Sex: Female

DRUGS (1)
  1. ENTRESTO [Suspect]
     Active Substance: SACUBITRIL\VALSARTAN
     Indication: Product used for unknown indication
     Dosage: 1 DF, BID (24/26 MG)
     Route: 065
     Dates: start: 2020

REACTIONS (5)
  - Cardiac infection [Unknown]
  - Postoperative wound infection [Unknown]
  - Arthritis [Unknown]
  - Weight decreased [Unknown]
  - Blister [Unknown]
